FAERS Safety Report 14613765 (Version 1)
Quarter: 2018Q1

REPORT INFORMATION
  Report Type: Spontaneous
  Country: US (occurrence: US)
  Receive Date: 20180308
  Receipt Date: 20180308
  Transmission Date: 20180509
  Serious: Yes (Other)
  Sender: FDA-Public Use
  Company Number: US-009507513-1803USA001352

PATIENT
  Age: 59 Year
  Sex: Male

DRUGS (10)
  1. CLOPIDOGREL [Concomitant]
     Active Substance: CLOPIDOGREL BISULFATE
     Dosage: 75 MG, QD (ONCE DAILY)
  2. EPOGEN [Concomitant]
     Active Substance: ERYTHROPOIETIN
     Dosage: 10,000UNITS/ML, 1 ML INJECTION AS NEEDED
  3. NITROSTAT [Concomitant]
     Active Substance: NITROGLYCERIN
     Dosage: 0.4 DF, PRN (AS NEEDED)
  4. ZEPATIER [Suspect]
     Active Substance: ELBASVIR\GRAZOPREVIR
     Indication: CHRONIC HEPATITIS C
     Dosage: 1 DF, QD, (1 TABLET ONCE DAILY) BY MOUTH
     Route: 048
     Dates: start: 20170920, end: 20171212
  5. CARVEDILOL. [Concomitant]
     Active Substance: CARVEDILOL
     Dosage: 12.5 MG, BID (TWICE DAILY)
  6. FOSRENOL [Concomitant]
     Active Substance: LANTHANUM CARBONATE
     Dosage: 2 DF, TID (2 TABLETS, THREE TIMES A DAY)
  7. ASPIRIN. [Concomitant]
     Active Substance: ASPIRIN
     Dosage: 81 MG, QD, ONCE DAILY
  8. LOSARTAN POTASSIUM. [Concomitant]
     Active Substance: LOSARTAN POTASSIUM
     Dosage: 25 MG, QD (ONCE DAILY)
  9. RENVELA [Concomitant]
     Active Substance: SEVELAMER CARBONATE
     Dosage: 2 DF, TID (2 TABLETS, THREE TIMES A DAY)
  10. GABAPENTIN. [Concomitant]
     Active Substance: GABAPENTIN
     Dosage: 300 MG, TID, THREE TIMES A DAY

REACTIONS (1)
  - Hepatitis C [Not Recovered/Not Resolved]

NARRATIVE: CASE EVENT DATE: 20180205
